FAERS Safety Report 9031842 (Version 2)
Quarter: 2013Q2

REPORT INFORMATION
  Report Type: Spontaneous
  Country: US (occurrence: US)
  Receive Date: 20130124
  Receipt Date: 20130514
  Transmission Date: 20140414
  Serious: Yes (Death, Life-Threatening, Hospitalization, Disabling)
  Sender: FDA-Public Use
  Company Number: US-GLAXOSMITHKLINE-A1009520A

PATIENT
  Age: 70 Year
  Sex: Male

DRUGS (12)
  1. PROMACTA [Suspect]
     Indication: THROMBOCYTOPENIA
     Dosage: 75MG PER DAY
     Route: 048
     Dates: start: 20121017
  2. STEROIDS (UNKNOWN) [Suspect]
     Indication: PRODUCT USED FOR UNKNOWN INDICATION
     Route: 065
  3. NOVOLOG [Concomitant]
  4. LIPITOR [Concomitant]
  5. COSOPT PLUS [Concomitant]
  6. ARANESP [Concomitant]
  7. ZEMPLAR [Concomitant]
  8. CYMBALTA [Concomitant]
  9. XALATAN [Concomitant]
  10. ALPHAGAN-P [Concomitant]
  11. LOVAZA [Concomitant]
  12. CALCIUM [Concomitant]

REACTIONS (1)
  - Pneumonia fungal [Fatal]
